FAERS Safety Report 9426661 (Version 1)
Quarter: 2013Q3

REPORT INFORMATION
  Report Type: Spontaneous
  Country: US (occurrence: US)
  Receive Date: 20130730
  Receipt Date: 20130730
  Transmission Date: 20140515
  Serious: No
  Sender: FDA-Public Use
  Company Number: US-SANOFI-AVENTIS-2013SA043121

PATIENT
  Age: 57 Year
  Sex: Female

DRUGS (1)
  1. AMBIEN CR [Suspect]
     Indication: SLEEP DISORDER
     Route: 065

REACTIONS (3)
  - Amnesia [Not Recovered/Not Resolved]
  - Mental disorder [Not Recovered/Not Resolved]
  - Somnambulism [Not Recovered/Not Resolved]
